FAERS Safety Report 17467498 (Version 1)
Quarter: 2020Q1

REPORT INFORMATION
  Report Type: Spontaneous
  Country: US (occurrence: US)
  Receive Date: 20200227
  Receipt Date: 20200227
  Transmission Date: 20200409
  Serious: No
  Sender: FDA-Public Use
  Company Number: US-PFIZER INC-2020087404

PATIENT
  Age: 73 Year
  Sex: Female
  Weight: 54.42 kg

DRUGS (3)
  1. CIPRO [Suspect]
     Active Substance: CIPROFLOXACIN HYDROCHLORIDE
     Dosage: UNK
  2. AZITHROMYCIN ANHYDROUS. [Suspect]
     Active Substance: AZITHROMYCIN ANHYDROUS
     Dosage: UNK
  3. CASEIN. [Suspect]
     Active Substance: CASEIN
     Dosage: UNK

REACTIONS (1)
  - Drug hypersensitivity [Unknown]
